FAERS Safety Report 5763050-9 (Version None)
Quarter: 2008Q2

REPORT INFORMATION
  Report Type: 
  Country: None (occurrence: None)
  Receive Date: 20080609
  Receipt Date: 20080528
  Transmission Date: 20081010
  Serious: Yes (Other)
  Sender: FDA-Public Use
  Company Number: ES-PFIZER INC-2008045193

PATIENT
  Age: 48 Year
  Sex: Male

DRUGS (6)
  1. LYRICA [Suspect]
     Indication: SPINAL OSTEOARTHRITIS
     Route: 048
  2. ZYTRAM [Interacting]
     Indication: SPINAL OSTEOARTHRITIS
     Route: 048
  3. DOLGESIC CODEINA [Interacting]
     Indication: SPINAL OSTEOARTHRITIS
     Route: 048
  4. NAPROXEN [Concomitant]
  5. OMEPRAZOLE [Concomitant]
  6. METAMIZOLE [Concomitant]

REACTIONS (3)
  - AMNESIA [None]
  - DRUG INTERACTION [None]
  - SOMNOLENCE [None]
